FAERS Safety Report 13019578 (Version 1)
Quarter: 2016Q4

REPORT INFORMATION
  Report Type: Spontaneous
  Country: US (occurrence: US)
  Receive Date: 20161212
  Receipt Date: 20161212
  Transmission Date: 20170207
  Serious: No
  Sender: FDA-Public Use
  Company Number: US-ROCHE-1831642

PATIENT
  Age: 70 Year
  Sex: Female

DRUGS (1)
  1. ACTEMRA [Suspect]
     Active Substance: TOCILIZUMAB
     Indication: RHEUMATOID ARTHRITIS
     Route: 058
     Dates: start: 20160315, end: 20160429

REACTIONS (4)
  - Dizziness [Unknown]
  - Pain [Unknown]
  - Injection site infection [Unknown]
  - Rash [Unknown]

NARRATIVE: CASE EVENT DATE: 201605
